FAERS Safety Report 6578827-X (Version None)
Quarter: 2010Q1

REPORT INFORMATION
  Report Type: 
  Country: None (occurrence: None)
  Receive Date: 20100202
  Receipt Date: 20100118
  Transmission Date: 20100710
  Serious: Yes (Hospitalization)
  Sender: FDA-Public Use
  Company Number: 1-21348653

PATIENT
  Age: 51 Year
  Sex: Female
  Weight: 100.6985 kg

DRUGS (7)
  1. AMPHETAMINE SALTS TABLETS 20MG [Suspect]
     Indication: DISTURBANCE IN ATTENTION
     Dosage: 20MG Q AM + 10MG TWICE DAILY, ORAL
     Route: 048
     Dates: start: 20080501
  2. AMPHETAMINE SALTS TABLETS 20MG [Suspect]
     Indication: FATIGUE
     Dosage: 20MG Q AM + 10MG TWICE DAILY, ORAL
     Route: 048
     Dates: start: 20080501
  3. METFORMIN HCL [Concomitant]
  4. NEXIUM [Concomitant]
  5. EFFEXOR [Concomitant]
  6. NORVASC [Concomitant]
  7. XANAX [Concomitant]

REACTIONS (9)
  - DISTURBANCE IN ATTENTION [None]
  - DRUG INEFFECTIVE [None]
  - FATIGUE [None]
  - HYPOAESTHESIA [None]
  - INCORRECT DOSE ADMINISTERED [None]
  - PRODUCT SUBSTITUTION ISSUE [None]
  - SOMNOLENCE [None]
  - STRESS [None]
  - THERAPEUTIC RESPONSE UNEXPECTED [None]
